FAERS Safety Report 23623605 (Version 2)
Quarter: 2024Q2

REPORT INFORMATION
  Report Type: Spontaneous
  Country: JP (occurrence: JP)
  Receive Date: 20240312
  Receipt Date: 20240404
  Transmission Date: 20240716
  Serious: Yes (Other)
  Sender: FDA-Public Use
  Company Number: JP-BAXTER-2024BAX014446

PATIENT
  Age: 24 Year
  Sex: Male

DRUGS (5)
  1. IFOSFAMIDE [Suspect]
     Active Substance: IFOSFAMIDE
     Indication: NUT midline carcinoma
     Dosage: 1 GRAM INJECTION, 6 COURSES OF VDC-IE CHEMOTHERAPY
     Route: 065
  2. CYCLOPHOSPHAMIDE [Suspect]
     Active Substance: CYCLOPHOSPHAMIDE
     Indication: NUT midline carcinoma
     Dosage: 6 COURSES OF VDC-IE CHEMOTHERAPY
     Route: 065
  3. DOXORUBICIN [Suspect]
     Active Substance: DOXORUBICIN
     Indication: NUT midline carcinoma
     Dosage: 6 COURSES OF VDC-IE CHEMOTHERAPY
     Route: 065
  4. ETOPOSIDE [Suspect]
     Active Substance: ETOPOSIDE
     Indication: NUT midline carcinoma
     Dosage: 6 COURSES OF VDC-IE CHEMOTHERAPY
     Route: 065
  5. VINCRISTINE SULFATE [Suspect]
     Active Substance: VINCRISTINE SULFATE
     Indication: NUT midline carcinoma
     Dosage: 6 COURSES OF VDC-IE CHEMOTHERAPY
     Route: 065

REACTIONS (1)
  - Febrile neutropenia [Unknown]
